FAERS Safety Report 4552838-8 (Version None)
Quarter: 2005Q1

REPORT INFORMATION
  Report Type: 
  Country: None (occurrence: None)
  Receive Date: 20050112
  Receipt Date: 20041222
  Transmission Date: 20050727
  Serious: Yes (Life-Threatening)
  Sender: FDA-Public Use
  Company Number: USA041286996

PATIENT

DRUGS (4)
  1. HUMALOG [Suspect]
  2. HUMULIN N [Suspect]
  3. HUMULIN R [Suspect]
  4. LANTUS [Concomitant]

REACTIONS (4)
  - CAESAREAN SECTION [None]
  - DRUG EXPOSURE DURING PREGNANCY [None]
  - FOETAL HEART RATE DECREASED [None]
  - HYPERSENSITIVITY [None]
